FAERS Safety Report 4324677-4 (Version None)
Quarter: 2004Q1

REPORT INFORMATION
  Report Type: 
  Country: None (occurrence: None)
  Receive Date: 20040322
  Receipt Date: 20040310
  Transmission Date: 20041129
  Serious: Yes (Hospitalization)
  Sender: FDA-Public Use
  Company Number: 2004201539JP

PATIENT
  Age: 17 Year
  Sex: Male
  Weight: 57 kg

DRUGS (15)
  1. IDAMYCIN (IDARUBICIN HYDROCHLORIDE) POWDER, STERILE [Suspect]
     Indication: ACUTE MYELOID LEUKAEMIA
     Dosage: 21 MG, IV
     Route: 042
     Dates: start: 20031123, end: 20031125
  2. ALEXAN (CYTARABINE) SOLUTION, STERILE [Suspect]
     Indication: ACUTE MYELOID LEUKAEMIA
     Dosage: 175 MG, IV
     Route: 042
     Dates: start: 20031123, end: 20031129
  3. ZYLORIC [Concomitant]
  4. SELBEX (TEPRENONE) [Concomitant]
  5. GASTER [Concomitant]
  6. DIFLUCAN [Concomitant]
  7. CIPROXAN (CIPROFLOXACIN HYDROCHLORIDE) [Concomitant]
  8. MAGNESIUM OXIDE [Concomitant]
  9. SENNARIDE (SENNOSIDE A + B) [Concomitant]
  10. POLYMYXIN B SULFATE [Concomitant]
  11. CEFOZOPRAN HYDROCHLORIDE [Concomitant]
  12. RAMOSETRON HYDROCHLORIDE [Concomitant]
  13. PLATELETS [Concomitant]
  14. RED BLOOD CELLS [Concomitant]
  15. MODACIN (CEFTAZIDINE) [Concomitant]

REACTIONS (9)
  - BONE MARROW DEPRESSION [None]
  - CENTRAL LINE INFECTION [None]
  - FATIGUE [None]
  - GAIT DISTURBANCE [None]
  - HAEMOGLOBIN DECREASED [None]
  - NECROTISING FASCIITIS [None]
  - PLATELET COUNT DECREASED [None]
  - STAPHYLOCOCCAL INFECTION [None]
  - WHITE BLOOD CELL COUNT DECREASED [None]
